FAERS Safety Report 8873970 (Version 4)
Quarter: 2012Q4

REPORT INFORMATION
  Report Type: Report from Study
  Country: ES (occurrence: ES)
  Receive Date: 20121023
  Receipt Date: 20121205
  Transmission Date: 20130627
  Serious: Yes (Death, Hospitalization)
  Sender: FDA-Public Use
  Company Number: ES-OTSUKA-EU-2012-10265

PATIENT
  Sex: Male

DRUGS (8)
  1. SAMSCA [Suspect]
     Indication: INAPPROPRIATE ANTIDIURETIC HORMONE SECRETION
     Dosage: 15 Mg milligram(s), daily dose
     Route: 048
     Dates: start: 20120704, end: 20120815
  2. ENANTYUM [Concomitant]
     Indication: PAIN
     Dosage: 50 Mg milligram(s), prn
     Route: 048
     Dates: start: 20120709, end: 20120815
  3. FORTECORTIN [Concomitant]
     Indication: PROPHYLAXIS
     Dosage: 4 Mg milligram(s), daily dose
     Route: 048
     Dates: start: 20120116, end: 20120815
  4. LORAZEPAM [Concomitant]
     Indication: PROPHYLAXIS
     Dosage: 2 Mg milligram(s), daily dose
     Route: 048
     Dates: start: 20120116, end: 20120814
  5. PREGABALIN [Concomitant]
     Indication: PAIN
     Dosage: 75 Mg milligram(s), daily dose
     Route: 048
     Dates: start: 20120106, end: 201208
  6. METAMIZOL [Concomitant]
     Indication: PAIN
     Dosage: 2 G gram(s), prn
     Route: 048
     Dates: start: 20120204, end: 20120815
  7. DUROGESIC [Concomitant]
     Indication: PAIN
     Dosage: 1 DF dosage form, prn
     Route: 062
     Dates: start: 201201, end: 20120604
  8. PANTOPRAZOL [Concomitant]
     Indication: PROPHYLAXIS
     Dosage: 20 Mg milligram(s), daily dose
     Route: 048
     Dates: start: 20120116, end: 20120814

REACTIONS (5)
  - Respiratory failure [Fatal]
  - Asthenia [Not Recovered/Not Resolved]
  - Haematemesis [Recovered/Resolved]
  - Spinal cord compression [Not Recovered/Not Resolved]
  - Tremor [Not Recovered/Not Resolved]
